FAERS Safety Report 20569255 (Version 1)
Quarter: 2022Q1

REPORT INFORMATION
  Report Type: Other
  Country: IN (occurrence: None)
  Receive Date: 20220308
  Receipt Date: 20220308
  Transmission Date: 20220423
  Serious: Yes (Hospitalization)
  Sender: FDA-Public Use
  Company Number: IN-Square-000053

PATIENT
  Age: 33 Year
  Sex: Male

DRUGS (1)
  1. ACYCLOVIR [Suspect]
     Active Substance: ACYCLOVIR
     Indication: Herpes simplex encephalitis
     Dosage: 10MG/KG EVERY EIGHT HOURLY
     Route: 042

REACTIONS (2)
  - Therapy partial responder [Unknown]
  - Learning disorder [Unknown]
